FAERS Safety Report 5136208-X (Version None)
Quarter: 2006Q4

REPORT INFORMATION
  Report Type: 
  Country: None (occurrence: None)
  Receive Date: 20061027
  Receipt Date: 20061016
  Transmission Date: 20070319
  Serious: Yes (Disabling)
  Sender: FDA-Public Use
  Company Number: 2006AC01883

PATIENT

DRUGS (8)
  1. QUETIAPINE [Suspect]
     Indication: MAJOR DEPRESSION
     Route: 064
  2. QUETIAPINE [Suspect]
     Indication: PANIC DISORDER
     Route: 064
  3. QUETIAPINE [Suspect]
     Route: 063
  4. QUETIAPINE [Suspect]
     Route: 063
  5. PAROXETINE HCL [Suspect]
     Indication: MAJOR DEPRESSION
     Route: 064
  6. PAROXETINE HCL [Suspect]
     Indication: PANIC DISORDER
     Route: 064
  7. PAROXETINE HCL [Suspect]
     Route: 063
  8. PAROXETINE HCL [Suspect]
     Route: 063

REACTIONS (3)
  - DEVELOPMENTAL DELAY [None]
  - DRUG EXPOSURE DURING PREGNANCY [None]
  - DRUG EXPOSURE VIA BREAST MILK [None]
